FAERS Safety Report 17675064 (Version 1)
Quarter: 2020Q2

REPORT INFORMATION
  Report Type: Spontaneous
  Country: CN (occurrence: CN)
  Receive Date: 20200416
  Receipt Date: 20200416
  Transmission Date: 20200714
  Serious: Yes (Other)
  Sender: FDA-Public Use
  Company Number: CN-BAXTER-2020BAX008186

PATIENT
  Age: 54 Year
  Sex: Male
  Weight: 55 kg

DRUGS (6)
  1. ENDOXAN [Suspect]
     Active Substance: CYCLOPHOSPHAMIDE
     Indication: SQUAMOUS CELL CARCINOMA
     Dosage: CYCLOPHOSPHAMIDE 1 G + 0.9% SODIUM CHLORIDE 100 ML
     Route: 041
     Dates: start: 20200318, end: 20200319
  2. 0.9% SODIUM CHLORIDE INJECTION [Suspect]
     Active Substance: SODIUM CHLORIDE
     Indication: MEDICATION DILUTION
     Dosage: CYCLOPHOSPHAMIDE 1 G + 0.9% SODIUM CHLORIDE 100 ML
     Route: 041
     Dates: start: 20200318, end: 20200319
  3. 0.9% SODIUM CHLORIDE INJECTION [Suspect]
     Active Substance: SODIUM CHLORIDE
     Dosage: EPIRUBICIN HYDROCHLORIDE 120 MG + 0.9% SODIUM CHLORIDE 100 ML
     Route: 041
     Dates: start: 20200318, end: 20200319
  4. EPIRUBICIN HYDROCHLORIDE. [Suspect]
     Active Substance: EPIRUBICIN HYDROCHLORIDE
     Indication: SQUAMOUS CELL CARCINOMA
     Dosage: EPIRUBICIN HYDROCHLORIDE 120 MG + 0.9% SODIUM CHLORIDE 100 ML
     Route: 041
     Dates: start: 20200318, end: 20200319
  5. 0.9% SODIUM CHLORIDE INJECTION [Suspect]
     Active Substance: SODIUM CHLORIDE
     Dosage: CISPLATIN 60 MG + 0.9 % SODIUM CHLORIDE 250 ML
     Route: 041
     Dates: start: 20200318, end: 20200320
  6. CISPLATIN. [Suspect]
     Active Substance: CISPLATIN
     Indication: SQUAMOUS CELL CARCINOMA
     Dosage: CISPLATIN 60 MG + 0.9 % SODIUM CHLORIDE 250 ML
     Route: 041
     Dates: start: 20200318, end: 20200320

REACTIONS (1)
  - Bone marrow failure [Recovering/Resolving]

NARRATIVE: CASE EVENT DATE: 20200328
